FAERS Safety Report 8546622-8 (Version None)
Quarter: 2012Q3

REPORT INFORMATION
  Report Type: 
  Country: None (occurrence: None)
  Receive Date: 20120727
  Receipt Date: 20120103
  Transmission Date: 20120928
  Serious: No
  Sender: FDA-Public Use
  Company Number: US-ASTRAZENECA-2012SE00425

PATIENT
  Age: 51 Year
  Sex: Female
  Weight: 52.2 kg

DRUGS (2)
  1. SEROQUEL [Suspect]
     Route: 048
  2. LAMICITAL [Concomitant]

REACTIONS (2)
  - MALAISE [None]
  - DRUG DOSE OMISSION [None]
